FAERS Safety Report 8025177-0 (Version None)
Quarter: 2012Q1

REPORT INFORMATION
  Report Type: 
  Country: None (occurrence: None)
  Receive Date: 20120105
  Receipt Date: 20111229
  Transmission Date: 20120608
  Serious: Yes (Other)
  Sender: FDA-Public Use
  Company Number: US-GLAXOSMITHKLINE-A0959891A

PATIENT
  Sex: Male

DRUGS (1)
  1. AVANDIA [Suspect]
     Indication: DIABETES MELLITUS
     Route: 048

REACTIONS (7)
  - MYOCARDIAL ISCHAEMIA [None]
  - ANGINA UNSTABLE [None]
  - RENAL FAILURE [None]
  - LEFT VENTRICULAR DYSFUNCTION [None]
  - ACUTE MYOCARDIAL INFARCTION [None]
  - CARDIAC FAILURE [None]
  - CORONARY ARTERY DISEASE [None]
